FAERS Safety Report 17934654 (Version 1)
Quarter: 2020Q2

REPORT INFORMATION
  Report Type: Spontaneous
  Country: US (occurrence: US)
  Receive Date: 20200623
  Receipt Date: 20200623
  Transmission Date: 20200714
  Serious: No
  Sender: FDA-Public Use
  Company Number: None

PATIENT
  Sex: Female
  Weight: 64.8 kg

DRUGS (10)
  1. LEVOFLOXACIN. [Suspect]
     Active Substance: LEVOFLOXACIN
     Indication: BACTERIAL INFECTION
     Route: 048
     Dates: start: 20200403, end: 20200406
  2. CLINDAMYCIN. [Suspect]
     Active Substance: CLINDAMYCIN
  3. VITAMIN D [Concomitant]
     Active Substance: VITAMIN D NOS
  4. FIBER [Concomitant]
     Active Substance: PSYLLIUM HUSK
  5. CLINDAMYACIN GEL [Concomitant]
  6. VITAMINS [Concomitant]
     Active Substance: VITAMINS
  7. MITOQ 10 [Concomitant]
  8. CALCIUM [Concomitant]
     Active Substance: CALCIUM
  9. PROBIOTICS [Concomitant]
     Active Substance: PROBIOTICS NOS
  10. MAGNESIUM [Concomitant]
     Active Substance: MAGNESIUM

REACTIONS (8)
  - Limb discomfort [None]
  - Disorganised speech [None]
  - Fatigue [None]
  - Large intestine infection [None]
  - Joint stiffness [None]
  - Pain [None]
  - Burning sensation [None]
  - Paraesthesia [None]
